FAERS Safety Report 18846611 (Version 1)
Quarter: 2021Q1

REPORT INFORMATION
  Report Type: Report from Study
  Country: US (occurrence: US)
  Receive Date: 20210203
  Receipt Date: 20210203
  Transmission Date: 20210419
  Serious: No
  Sender: FDA-Public Use
  Company Number: US-EXELIXIS-CABO-19026105

PATIENT
  Sex: Male

DRUGS (3)
  1. CABOMETYX [Suspect]
     Active Substance: CABOZANTINIB S-MALATE
     Indication: RENAL CELL CARCINOMA
     Dosage: 60 MG, ( AT 9 AM, WITHOUT FOOD)
     Dates: start: 20191115, end: 201912
  2. CABOMETYX [Suspect]
     Active Substance: CABOZANTINIB S-MALATE
     Dosage: 60 MG, ( AT 9 AM, WITHOUT FOOD)
     Route: 048
  3. ZOFRAN [Concomitant]
     Active Substance: ONDANSETRON HYDROCHLORIDE
     Dosage: EVERY OTHER DAY

REACTIONS (13)
  - Nasopharyngitis [Unknown]
  - Ageusia [Recovering/Resolving]
  - Stomatitis [Recovering/Resolving]
  - Dry mouth [Unknown]
  - Nausea [Recovering/Resolving]
  - Fatigue [Recovering/Resolving]
  - Gingival pain [Recovering/Resolving]
  - Anxiety [Unknown]
  - Constipation [Recovered/Resolved]
  - Dry skin [Unknown]
  - Decreased appetite [Recovering/Resolving]
  - Weight decreased [Not Recovered/Not Resolved]
  - Vomiting [Recovered/Resolved]
